FAERS Safety Report 21915914 (Version 3)
Quarter: 2023Q1

REPORT INFORMATION
  Report Type: Spontaneous
  Country: US (occurrence: US)
  Receive Date: 20230126
  Receipt Date: 20230308
  Transmission Date: 20230418
  Serious: Yes (Other)
  Sender: FDA-Public Use
  Company Number: US-BRISTOL-MYERS SQUIBB COMPANY-2023-011105

PATIENT
  Age: 71 Year
  Sex: Male

DRUGS (2)
  1. POMALYST [Suspect]
     Active Substance: POMALIDOMIDE
     Indication: Plasma cell myeloma
  2. POMALYST [Suspect]
     Active Substance: POMALIDOMIDE
     Dosage: FREQUENCY- 21
     Dates: start: 20221208

REACTIONS (6)
  - Drug ineffective [Unknown]
  - Oedema [Unknown]
  - Peripheral swelling [Unknown]
  - Constipation [Unknown]
  - Fatigue [Unknown]
  - Platelet count decreased [Unknown]
